FAERS Safety Report 25050791 (Version 1)
Quarter: 2025Q1

REPORT INFORMATION
  Report Type: Report from Study
  Country: US (occurrence: US)
  Receive Date: 20250307
  Receipt Date: 20250307
  Transmission Date: 20250409
  Serious: Yes (Other)
  Sender: UCB
  Company Number: US-UCBSA-2025012971

PATIENT
  Age: 22 Year
  Sex: Male
  Weight: 58 kg

DRUGS (1)
  1. FINTEPLA [Suspect]
     Active Substance: FENFLURAMINE
     Indication: Epilepsy
     Dates: start: 20221011

REACTIONS (1)
  - Tricuspid valve incompetence [Unknown]

NARRATIVE: CASE EVENT DATE: 20250225
